FAERS Safety Report 15053319 (Version 8)
Quarter: 2018Q4

REPORT INFORMATION
  Report Type: Spontaneous
  Country: US (occurrence: US)
  Receive Date: 20180622
  Receipt Date: 20181221
  Transmission Date: 20190204
  Serious: Yes (Hospitalization)
  Sender: FDA-Public Use
  Company Number: US-ACTELION-A-NJ2018-173735

PATIENT
  Age: 16 Month
  Sex: Female
  Weight: 6.8 kg

DRUGS (3)
  1. REVATIO [Concomitant]
     Active Substance: SILDENAFIL CITRATE
  2. TRACLEER [Suspect]
     Active Substance: BOSENTAN
     Dosage: 14.2 MG, BID
     Route: 048
  3. TRACLEER [Suspect]
     Active Substance: BOSENTAN
     Indication: PULMONARY HYPERTENSION
     Dosage: 32 MG, BID
     Route: 048

REACTIONS (8)
  - Dyspnoea [Unknown]
  - Pneumonia [Unknown]
  - Hospitalisation [Unknown]
  - Pyrexia [Unknown]
  - No adverse event [Unknown]
  - Sedation [Unknown]
  - Product use issue [Unknown]
  - Oxygen saturation decreased [Recovering/Resolving]
